FAERS Safety Report 13234106 (Version 1)
Quarter: 2017Q1

REPORT INFORMATION
  Report Type: Spontaneous
  Country: US (occurrence: US)
  Receive Date: 20170215
  Receipt Date: 20170215
  Transmission Date: 20170428
  Serious: Yes (Hospitalization)
  Sender: FDA-Public Use
  Company Number: US-TEVA-729445USA

PATIENT
  Sex: Female

DRUGS (15)
  1. SIMVASTATIN. [Concomitant]
     Active Substance: SIMVASTATIN
     Dosage: DAILY
     Route: 048
  2. FIBRE FORMULA [Concomitant]
     Dosage: 6 TABLETS DAILY
  3. AMPYRA [Concomitant]
     Active Substance: DALFAMPRIDINE
     Dosage: TWICE A DAY
     Route: 048
  4. MULTIVITAMIN [Concomitant]
     Active Substance: VITAMINS
     Dosage: TAKE ONE TABLET DAILY
  5. BACLOFEN. [Concomitant]
     Active Substance: BACLOFEN
     Dosage: EVERY 6 HOURS
     Route: 048
  6. COPAXONE [Suspect]
     Active Substance: GLATIRAMER ACETATE
     Indication: MULTIPLE SCLEROSIS
     Route: 058
     Dates: start: 201504, end: 20161201
  7. NADOLOL. [Concomitant]
     Active Substance: NADOLOL
     Dosage: DAILY
     Route: 048
  8. NITROFURANTOIN MACROCRYSTALS [Concomitant]
     Active Substance: NITROFURANTOIN
     Dosage: TAKE DAILY AT BED TIME
     Route: 048
  9. AMITIZA [Concomitant]
     Active Substance: LUBIPROSTONE
     Dosage: TWICE A DAY
     Route: 048
  10. VITAMIN B12 [Concomitant]
     Active Substance: CYANOCOBALAMIN
     Dosage: ONCE A WEEK
  11. TOPAMAX [Concomitant]
     Active Substance: TOPIRAMATE
     Dosage: TWICE A DAY
     Route: 048
  12. ALENDRONATE [Concomitant]
     Active Substance: ALENDRONATE SODIUM
     Dosage: ONCE A WEEK
  13. LEVOTHYROXINE. [Concomitant]
     Active Substance: LEVOTHYROXINE
     Dosage: TAKE  188MCG (100 MCG + 88 MCG ) DAILY
  14. VITAMIN D [Concomitant]
     Active Substance: CHOLECALCIFEROL
     Dosage: DAILY
  15. MIRABEGRON ER [Concomitant]
     Active Substance: MIRABEGRON
     Dosage: ONE TABLET DAILY

REACTIONS (9)
  - Back pain [Recovered/Resolved]
  - Flushing [Recovered/Resolved]
  - Pulse abnormal [Recovered/Resolved]
  - Headache [Recovered/Resolved]
  - Hypotension [Recovered/Resolved]
  - Dyspnoea [Recovered/Resolved]
  - Skin discolouration [Recovered/Resolved]
  - Motor dysfunction [Recovered/Resolved]
  - Erythema [Recovered/Resolved]

NARRATIVE: CASE EVENT DATE: 20161201
